FAERS Safety Report 4307511-8 (Version None)
Quarter: 2004Q1

REPORT INFORMATION
  Report Type: 
  Country: None (occurrence: None)
  Receive Date: 20040226
  Receipt Date: 20040220
  Transmission Date: 20041129
  Serious: Yes (Other)
  Sender: FDA-Public Use
  Company Number: 2003124446

PATIENT
  Sex: Female

DRUGS (1)
  1. VFEND [Suspect]
     Indication: CANDIDIASIS
     Dosage: ORAL
     Route: 048

REACTIONS (3)
  - ILLUSION [None]
  - NIGHTMARE [None]
  - SENSORY DISTURBANCE [None]
